FAERS Safety Report 6247181-5 (Version None)
Quarter: 2009Q2

REPORT INFORMATION
  Report Type: 
  Country: None (occurrence: None)
  Receive Date: 20090626
  Receipt Date: 20090616
  Transmission Date: 20091009
  Serious: Yes (Hospitalization, Other)
  Sender: FDA-Public Use
  Company Number: DE-ABBOTT-09P-062-0580477-00

PATIENT
  Sex: Male
  Weight: 35 kg

DRUGS (2)
  1. LUPRON DEPOT [Suspect]
     Indication: PRECOCIOUS PUBERTY
     Route: 058
     Dates: start: 20080827, end: 20090507
  2. NORDITROPIN [Concomitant]
     Indication: GROWTH HORMONE DEFICIENCY
     Route: 058
     Dates: start: 20080124

REACTIONS (1)
  - INJECTION SITE ABSCESS [None]
